FAERS Safety Report 19576853 (Version 4)
Quarter: 2021Q4

REPORT INFORMATION
  Report Type: Spontaneous
  Country: FR (occurrence: FR)
  Receive Date: 20210719
  Receipt Date: 20211118
  Transmission Date: 20220303
  Serious: Yes (Other)
  Sender: FDA-Public Use
  Company Number: None

PATIENT
  Age: 57 Year
  Sex: Female
  Weight: 43 kg

DRUGS (6)
  1. EMEND [Suspect]
     Active Substance: APREPITANT
     Indication: Premedication
     Dosage: 1 DOSAGE FORM, Q3W
     Route: 048
     Dates: start: 20210326, end: 20210528
  2. TRASTUZUMAB DERUXTECAN [Suspect]
     Active Substance: TRASTUZUMAB DERUXTECAN
     Indication: Breast neoplasm
     Dosage: 240 MILLIGRAM, Q3W
     Route: 042
     Dates: start: 20210205, end: 20210528
  3. ONDANSETRON [Suspect]
     Active Substance: ONDANSETRON
     Indication: Premedication
     Dosage: 1 DOSAGE FORM, Q3W
     Route: 048
     Dates: start: 20210326, end: 20210528
  4. ELIQUIS [Concomitant]
     Active Substance: APIXABAN
     Indication: Thrombosis prophylaxis
     Dosage: UNKNOWN
     Route: 048
     Dates: start: 201912
  5. SKENAN [Concomitant]
     Active Substance: MORPHINE SULFATE
     Dosage: 20 MILLIGRAM, QD, MICROGRANULES PROLONGED RELEASE AS CAPSULE
     Route: 048
     Dates: start: 2010
  6. MORPHINE SULFATE [Concomitant]
     Active Substance: MORPHINE SULFATE
     Dosage: 1 DOSAGE FORM
     Route: 048
     Dates: start: 2010

REACTIONS (2)
  - Ulcerative keratitis [Recovered/Resolved]
  - Keratitis [Recovered/Resolved with Sequelae]

NARRATIVE: CASE EVENT DATE: 20210531
